FAERS Safety Report 4796614-X (Version None)
Quarter: 2005Q4

REPORT INFORMATION
  Report Type: 
  Country: None (occurrence: None)
  Receive Date: 20051013
  Receipt Date: 20051004
  Transmission Date: 20060501
  Serious: Yes (Disabling)
  Sender: FDA-Public Use
  Company Number: GB-BRISTOL-MYERS SQUIBB COMPANY-13131081

PATIENT
  Age: 54 Year
  Sex: Female
  Weight: 76 kg

DRUGS (10)
  1. IRBESARTAN [Suspect]
     Indication: HYPERTENSION
     Route: 048
     Dates: start: 20000120, end: 20050816
  2. BENDROFLUMETHIAZIDE [Concomitant]
  3. ACETAMINOPHEN W/ CODEINE [Concomitant]
     Dosage: PRN
     Route: 048
  4. FLUOXETINE [Concomitant]
  5. LEVOTHYROXINE [Concomitant]
  6. OXAZEPAM [Concomitant]
     Dosage: ON
     Route: 048
  7. OXYBUTYNIN [Concomitant]
     Route: 048
  8. RANITIDINE [Concomitant]
  9. SALBUTAMOL [Concomitant]
     Dosage: PRN
     Route: 055
  10. SIMVASTATIN [Concomitant]
     Dosage: ON

REACTIONS (4)
  - FATIGUE [None]
  - MYALGIA [None]
  - PAIN IN EXTREMITY [None]
  - SENSATION OF HEAVINESS [None]
